FAERS Safety Report 6582226-4 (Version None)
Quarter: 2010Q1

REPORT INFORMATION
  Report Type: 
  Country: None (occurrence: None)
  Receive Date: 20100212
  Receipt Date: 20100212
  Transmission Date: 20100710
  Serious: No
  Sender: FDA-Public Use
  Company Number: None

PATIENT
  Age: 79 Year
  Sex: Male
  Weight: 78 kg

DRUGS (1)
  1. NEOMYCIN AND POLYMYXIN B SULFATE [Suspect]
     Indication: EAR INFECTION
     Dosage: 3 DROPS BID EAR
     Route: 001
     Dates: start: 20090929, end: 20091009

REACTIONS (1)
  - DERMATITIS CONTACT [None]
